FAERS Safety Report 8886027 (Version 1)
Quarter: 2012Q4

REPORT INFORMATION
  Report Type: 
  Country: ES (occurrence: ES)
  Receive Date: 20121105
  Receipt Date: 20121105
  Transmission Date: 20130627
  Serious: Yes (Other)
  Sender: FDA-Public Use
  Company Number: ES-JNJFOC-20121016131

PATIENT
  Age: 47 Year
  Sex: Male
  Weight: 75 kg

DRUGS (3)
  1. TOPAMAX [Suspect]
     Indication: DRUG DEPENDENCE
     Route: 048
  2. TOPAMAX [Suspect]
     Indication: DRUG DEPENDENCE
     Route: 048
  3. PAROXETINE [Concomitant]
     Indication: PRODUCT USED FOR UNKNOWN INDICATION
     Route: 065

REACTIONS (2)
  - Mania [Recovered/Resolved]
  - Off label use [Recovered/Resolved]
